FAERS Safety Report 25357617 (Version 1)
Quarter: 2025Q2

REPORT INFORMATION
  Report Type: Spontaneous
  Country: US (occurrence: US)
  Receive Date: 20250526
  Receipt Date: 20250526
  Transmission Date: 20250716
  Serious: No
  Sender: ACCORD
  Company Number: US-Accord-463630

PATIENT
  Sex: Female

DRUGS (12)
  1. METHOTREXATE [Suspect]
     Active Substance: METHOTREXATE
     Indication: Rheumatoid arthritis
     Dates: start: 202111, end: 20220201
  2. TYLENOL [Concomitant]
     Active Substance: ACETAMINOPHEN
  3. RITUXAN [Concomitant]
     Active Substance: RITUXIMAB
  4. AZATHIOPRINE [Concomitant]
     Active Substance: AZATHIOPRINE
  5. PREDNISONE [Concomitant]
     Active Substance: PREDNISONE
  6. VITAMIN B2 [Concomitant]
     Active Substance: RIBOFLAVIN
  7. CHOLECALCIFEROL [Concomitant]
     Active Substance: CHOLECALCIFEROL
  8. CYCLOBENZAPRINE [Concomitant]
     Active Substance: CYCLOBENZAPRINE
  9. TRAZODONE [Concomitant]
     Active Substance: TRAZODONE HYDROCHLORIDE
  10. HYDROXYCHLOROQUINE [Concomitant]
     Active Substance: HYDROXYCHLOROQUINE
  11. HERBALS\TURMERIC [Concomitant]
     Active Substance: HERBALS\TURMERIC
  12. CALCIUM CITRATE [Concomitant]
     Active Substance: CALCIUM CITRATE

REACTIONS (5)
  - Nausea [Unknown]
  - Tremor [Unknown]
  - Abdominal discomfort [Unknown]
  - Diarrhoea [Unknown]
  - Vomiting [Unknown]
